FAERS Safety Report 4978394-8 (Version None)
Quarter: 2006Q2

REPORT INFORMATION
  Report Type: 
  Country: None (occurrence: None)
  Receive Date: 20060414
  Receipt Date: 20060405
  Transmission Date: 20061013
  Serious: Yes (Hospitalization)
  Sender: FDA-Public Use
  Company Number: CIP06000813

PATIENT
  Age: 93 Year
  Sex: Female

DRUGS (5)
  1. FURADANTIN [Suspect]
     Indication: URINARY TRACT INFECTION
     Dosage: ORAL
     Route: 048
     Dates: start: 20031010, end: 20031101
  2. PREVISCAN (FLUINDIONE) [Concomitant]
  3. CORDARONE [Concomitant]
  4. DILTIAZEM HYDROCHLORIDE [Concomitant]
  5. CITALOPRAM HYDROBROMIDE [Concomitant]

REACTIONS (3)
  - CARDIAC FAILURE ACUTE [None]
  - INFECTION [None]
  - INTERSTITIAL LUNG DISEASE [None]
